FAERS Safety Report 10041546 (Version 2)
Quarter: 2014Q2

REPORT INFORMATION
  Report Type: Report from Study
  Country: US (occurrence: US)
  Receive Date: 20140327
  Receipt Date: 20140403
  Transmission Date: 20141212
  Serious: Yes (Hospitalization)
  Sender: FDA-Public Use
  Company Number: US-ACTELION-A-US2014-96211

PATIENT
  Age: 47 Year
  Sex: Female

DRUGS (2)
  1. VELETRI [Suspect]
     Indication: PULMONARY ARTERIAL HYPERTENSION
     Dosage: 8 NG/KG, PER MIN
     Route: 042
     Dates: start: 20140225
  2. REVATIO [Concomitant]

REACTIONS (17)
  - Respiratory arrest [Unknown]
  - Renal failure acute [Unknown]
  - Feeling abnormal [Unknown]
  - Respiratory failure [Unknown]
  - Hypotension [Unknown]
  - Device dislocation [Unknown]
  - Neck pain [Unknown]
  - Fatigue [Unknown]
  - Diarrhoea [Recovering/Resolving]
  - Decreased appetite [Unknown]
  - Dizziness [Unknown]
  - Pain [Recovering/Resolving]
  - Vision blurred [Unknown]
  - Feeling hot [Unknown]
  - Catheter site erythema [Unknown]
  - Catheter site swelling [Unknown]
  - Device issue [Recovered/Resolved]
